FAERS Safety Report 18753776 (Version 1)
Quarter: 2021Q1

REPORT INFORMATION
  Report Type: Report from Study
  Country: None (occurrence: US)
  Receive Date: 20210118
  Receipt Date: 20210118
  Transmission Date: 20210419
  Serious: Yes (Hospitalization, Other)
  Sender: FDA-Public Use
  Company Number: US-ABBVIE-20K-163-3686661-00

PATIENT
  Age: 60 Year
  Sex: Female

DRUGS (1)
  1. HUMIRA [Suspect]
     Active Substance: ADALIMUMAB
     Indication: RHEUMATOID ARTHRITIS
     Dosage: CITRATE FREE
     Route: 058
     Dates: start: 202001

REACTIONS (12)
  - Confusional state [Not Recovered/Not Resolved]
  - Neck pain [Unknown]
  - Product packaging difficult to open [Recovered/Resolved]
  - Trigger finger [Unknown]
  - Injury [Unknown]
  - Stress [Unknown]
  - Back pain [Unknown]
  - Headache [Recovering/Resolving]
  - Nerve compression [Recovering/Resolving]
  - Lower limb fracture [Unknown]
  - Road traffic accident [Recovering/Resolving]
  - Fall [Unknown]

NARRATIVE: CASE EVENT DATE: 2020
